FAERS Safety Report 4861842-1 (Version None)
Quarter: 2005Q4

REPORT INFORMATION
  Report Type: 
  Country: None (occurrence: None)
  Receive Date: 20051130
  Receipt Date: 20050318
  Transmission Date: 20060501
  Serious: Yes (Other)
  Sender: FDA-Public Use
  Company Number: 2005047167

PATIENT
  Sex: Female

DRUGS (2)
  1. LINEZOLID TABLET (LINEZOLID) [Suspect]
     Indication: ILL-DEFINED DISORDER
  2. PARACETAMOL (PARACETAMOL) [Suspect]
     Indication: ILL-DEFINED DISORDER

REACTIONS (2)
  - HEPATIC ENZYME INCREASED [None]
  - LACTIC ACIDOSIS [None]
